FAERS Safety Report 5741873-X (Version None)
Quarter: 2008Q2

REPORT INFORMATION
  Report Type: 
  Country: None (occurrence: None)
  Receive Date: 20080514
  Receipt Date: 20080514
  Transmission Date: 20081010
  Serious: Yes (Hospitalization)
  Sender: FDA-Public Use
  Company Number: None

PATIENT
  Age: 42 Year
  Sex: Male

DRUGS (1)
  1. CYTARABINE [Suspect]
     Indication: METASTASES TO MENINGES
     Dosage: 50MG  IT
     Route: 037
     Dates: start: 20080507, end: 20080507

REACTIONS (1)
  - ARACHNOIDITIS [None]
